FAERS Safety Report 7443709-8 (Version None)
Quarter: 2011Q2

REPORT INFORMATION
  Report Type: 
  Country: None (occurrence: None)
  Receive Date: 20110428
  Receipt Date: 20110112
  Transmission Date: 20111010
  Serious: Yes (Other)
  Sender: FDA-Public Use
  Company Number: PHHY2009TZ41745

PATIENT
  Sex: Female
  Weight: 62 kg

DRUGS (4)
  1. ACETAMINOPHEN [Concomitant]
     Indication: ANTIPYRESIS
     Dosage: 6
     Route: 048
     Dates: start: 20090625, end: 20090627
  2. ARTEMETHER,BENFLUMETOL [Suspect]
     Indication: MALARIA
     Dosage: 8
     Route: 048
     Dates: start: 20090625, end: 20090627
  3. DEPO-PROVERA [Concomitant]
  4. CONTRACEPTIVES NOS [Concomitant]

REACTIONS (2)
  - DRUG EXPOSURE DURING PREGNANCY [None]
  - PREMATURE LABOUR [None]
